FAERS Safety Report 10911583 (Version 1)
Quarter: 2015Q1

REPORT INFORMATION
  Report Type: Spontaneous
  Country: None (occurrence: None)
  Receive Date: 20150310
  Receipt Date: 20150310
  Transmission Date: 20150721
  Serious: No
  Sender: FDA-Public Use
  Company Number: None

PATIENT
  Age: 32 Year
  Sex: Female
  Weight: 52.16 kg

DRUGS (1)
  1. BUPRENORPHINE [Suspect]
     Active Substance: BUPRENORPHINE
     Dosage: 2 TABLETS; TAKEN UNDER THE TONGUE

REACTIONS (6)
  - Abdominal distension [None]
  - Mood swings [None]
  - Constipation [None]
  - Hypophagia [None]
  - Sleep disorder [None]
  - Headache [None]

NARRATIVE: CASE EVENT DATE: 20150301
